FAERS Safety Report 4313662-4 (Version None)
Quarter: 2004Q1

REPORT INFORMATION
  Report Type: 
  Country: None (occurrence: None)
  Receive Date: 20040308
  Receipt Date: 20031030
  Transmission Date: 20041129
  Serious: Yes (Death)
  Sender: FDA-Public Use
  Company Number: PHHO2003CA13861

PATIENT
  Age: 29 Year
  Sex: Female

DRUGS (4)
  1. CLOZARIL [Suspect]
     Indication: SCHIZOPHRENIA
     Dosage: 400 MG / HS
     Dates: start: 20021126
  2. AMISULPRIDE [Suspect]
  3. OXCARBAZEPINE [Suspect]
  4. METFORMIN [Suspect]

REACTIONS (1)
  - DRUG ABUSER [None]
